FAERS Safety Report 7315997-X (Version None)
Quarter: 2011Q1

REPORT INFORMATION
  Report Type: 
  Country: None (occurrence: None)
  Receive Date: 20110225
  Receipt Date: 20110215
  Transmission Date: 20110831
  Serious: Yes (Hospitalization)
  Sender: FDA-Public Use
  Company Number: PHHY2011US13612

PATIENT
  Sex: Male

DRUGS (1)
  1. RECLAST [Suspect]
     Dosage: 5 MG,
     Route: 042
     Dates: start: 20101117

REACTIONS (8)
  - MYOCARDIAL ISCHAEMIA [None]
  - TROPONIN INCREASED [None]
  - DYSPNOEA [None]
  - SINUS TACHYCARDIA [None]
  - ANAPHYLACTIC REACTION [None]
  - PALPITATIONS [None]
  - ACUTE MYOCARDIAL INFARCTION [None]
  - EJECTION FRACTION DECREASED [None]
